FAERS Safety Report 8210365-0 (Version None)
Quarter: 2012Q1

REPORT INFORMATION
  Report Type: 
  Country: None (occurrence: None)
  Receive Date: 20120314
  Receipt Date: 20111104
  Transmission Date: 20120608
  Serious: No
  Sender: FDA-Public Use
  Company Number: US-ASTRAZENECA-2011SE66806

PATIENT
  Age: 63 Year
  Sex: Female

DRUGS (4)
  1. LOSARTAN POTASSIUM [Suspect]
     Route: 065
  2. AMLODIPINE [Suspect]
     Route: 065
  3. CLONIDINE [Suspect]
     Route: 065
  4. TOPROL-XL [Suspect]
     Route: 048

REACTIONS (2)
  - HYPERTENSION [None]
  - DRUG INEFFECTIVE [None]
